FAERS Safety Report 24894372 (Version 1)
Quarter: 2025Q1

REPORT INFORMATION
  Report Type: Spontaneous
  Country: CO (occurrence: CO)
  Receive Date: 20250128
  Receipt Date: 20250128
  Transmission Date: 20250409
  Serious: Yes (Other)
  Sender: REGENERON
  Company Number: CO-SA-2025SA017000

PATIENT
  Age: 69 Year
  Sex: Male

DRUGS (1)
  1. PRALUENT [Suspect]
     Active Substance: ALIROCUMAB
     Indication: Hypercholesterolaemia
     Dosage: 150 MG, QOW
     Route: 058
     Dates: start: 202306

REACTIONS (4)
  - Myocardial bridging [Unknown]
  - Arterial occlusive disease [Unknown]
  - Memory impairment [Unknown]
  - Condition aggravated [Unknown]

NARRATIVE: CASE EVENT DATE: 20240101
